FAERS Safety Report 13089414 (Version 6)
Quarter: 2017Q2

REPORT INFORMATION
  Report Type: Spontaneous
  Country: US (occurrence: US)
  Receive Date: 20170105
  Receipt Date: 20170421
  Transmission Date: 20170830
  Serious: No
  Sender: FDA-Public Use
  Company Number: US-PFIZER INC-2016600928

PATIENT
  Age: 70 Year
  Sex: Male
  Weight: 79 kg

DRUGS (9)
  1. SUTENT [Suspect]
     Active Substance: SUNITINIB MALATE
     Indication: METASTATIC RENAL CELL CARCINOMA
     Dosage: 50 MG, CYCLIC, (28 DAYS ON/14 DAYS OFF)(ONCE A DAY FOR 28 DAYS ON AND TWO WEEKS OFF)
     Route: 048
     Dates: start: 20161210
  2. COZAAR [Concomitant]
     Active Substance: LOSARTAN POTASSIUM
     Dosage: UNK
  3. LANTUS [Concomitant]
     Active Substance: INSULIN GLARGINE
     Indication: DIABETES MELLITUS
     Dosage: 11 IU, 1X/DAY (11 UNITS IN THE MORNING)
     Dates: start: 201403
  4. SUTENT [Suspect]
     Active Substance: SUNITINIB MALATE
     Indication: RENAL CANCER
     Dosage: 50 MG X 1,(NOW ON SECOND CYCLE NOW)
     Dates: start: 20170121
  5. AMLODIPINE [Concomitant]
     Active Substance: AMLODIPINE BESYLATE
     Dosage: UNK
     Dates: start: 20161215
  6. HUMALOG [Concomitant]
     Active Substance: INSULIN LISPRO
     Indication: TYPE 2 DIABETES MELLITUS
     Dosage: 4 IU, AS NEEDED
     Dates: start: 201403
  7. HUMALOG [Concomitant]
     Active Substance: INSULIN LISPRO
     Dosage: 2 TO 3 UNITS DEPENDING ON HIS SUGAR
  8. MIRACLE MOUTH WASH [Concomitant]
     Active Substance: UNSPECIFIED INGREDIENT
     Dosage: UNK
     Dates: start: 201612
  9. ONDANSETRON [Concomitant]
     Active Substance: ONDANSETRON
     Dosage: UNK UNK, AS NEEDED
     Dates: start: 20161210

REACTIONS (14)
  - Insomnia [Recovered/Resolved]
  - White blood cell count decreased [Unknown]
  - Blood pressure increased [Recovered/Resolved]
  - Depression [Not Recovered/Not Resolved]
  - Gastric disorder [Not Recovered/Not Resolved]
  - Dyspepsia [Recovered/Resolved]
  - Malaise [Not Recovered/Not Resolved]
  - Stomatitis [Not Recovered/Not Resolved]
  - Nausea [Not Recovered/Not Resolved]
  - Decreased appetite [Not Recovered/Not Resolved]
  - Blood glucose decreased [Recovered/Resolved]
  - Anxiety [Unknown]
  - Gastrooesophageal reflux disease [Recovered/Resolved]
  - Blister [Unknown]

NARRATIVE: CASE EVENT DATE: 201612
